FAERS Safety Report 10633670 (Version 2)
Quarter: 2014Q4

REPORT INFORMATION
  Report Type: Spontaneous
  Country: US (occurrence: None)
  Receive Date: 20141203
  Receipt Date: 20141231
  Transmission Date: 20150529
  Serious: No
  Sender: FDA-Public Use
  Company Number: AXC-2014-000740

PATIENT
  Age: 65 Year
  Sex: Female
  Weight: 81.6 kg

DRUGS (4)
  1. ZENPEP [Suspect]
     Active Substance: PANCRELIPASE\PANCRELIPASE AMYLASE\PANCRELIPASE LIPASE\PANCRELIPASE PROTEASE
     Indication: DYSPEPSIA
     Dosage: 50000 USP WITH EACH MEAL, ORAL
     Route: 048
     Dates: start: 2014, end: 20141118
  2. ZENPEP [Suspect]
     Active Substance: PANCRELIPASE\PANCRELIPASE AMYLASE\PANCRELIPASE LIPASE\PANCRELIPASE PROTEASE
     Indication: ABDOMINAL DISTENSION
     Dosage: 50000 USP WITH EACH MEAL, ORAL
     Route: 048
     Dates: start: 2014, end: 20141118
  3. ZENPEP [Suspect]
     Active Substance: PANCRELIPASE\PANCRELIPASE AMYLASE\PANCRELIPASE LIPASE\PANCRELIPASE PROTEASE
     Indication: EPIGASTRIC DISCOMFORT
     Dosage: 50000 USP WITH EACH MEAL, ORAL
     Route: 048
     Dates: start: 2014, end: 20141118
  4. LACTULOSE. [Concomitant]
     Active Substance: LACTULOSE

REACTIONS (10)
  - Dizziness [None]
  - Condition aggravated [None]
  - Constipation [None]
  - Arthralgia [None]
  - Off label use [None]
  - No therapeutic response [None]
  - Fibromyalgia [None]
  - Pain [None]
  - Gastrointestinal disorder [None]
  - Epigastric discomfort [None]

NARRATIVE: CASE EVENT DATE: 2014
